FAERS Safety Report 23098391 (Version 2)
Quarter: 2023Q4

REPORT INFORMATION
  Report Type: Spontaneous
  Country: JP (occurrence: JP)
  Receive Date: 20231023
  Receipt Date: 20231227
  Transmission Date: 20240110
  Serious: Yes (Hospitalization)
  Sender: FDA-Public Use
  Company Number: JP-ELI_LILLY_AND_COMPANY-JP202310008373

PATIENT
  Age: 75 Year
  Sex: Female
  Weight: 40 kg

DRUGS (8)
  1. OLUMIANT [Suspect]
     Active Substance: BARICITINIB
     Indication: Rheumatoid arthritis
     Dosage: 4 MG, DAILY
     Route: 048
     Dates: start: 20200901, end: 20201221
  2. PROGRAF [Suspect]
     Active Substance: TACROLIMUS
     Indication: Rheumatoid arthritis
     Dosage: 1.5 MG, DAILY
     Route: 048
     Dates: end: 20201220
  3. AZILSARTAN KAMEDOXOMIL [Suspect]
     Active Substance: AZILSARTAN KAMEDOXOMIL
     Indication: Hypertension
     Dosage: 40 MG, DAILY
     Route: 048
     Dates: end: 20201221
  4. INDAPAMIDE [Suspect]
     Active Substance: INDAPAMIDE
     Indication: Aortic valve stenosis
     Dosage: 2 MG, DAILY
     Route: 048
     Dates: end: 20201221
  5. FUROSEMIDE\POTASSIUM CHLORIDE [Suspect]
     Active Substance: FUROSEMIDE\POTASSIUM CHLORIDE
     Indication: Aortic valve stenosis
     Dosage: 20 MG, DAILY
     Route: 048
     Dates: end: 20201221
  6. NORVASC [Concomitant]
     Active Substance: AMLODIPINE BESYLATE
     Indication: Hypertension
     Dosage: 10 MG, DAILY
     Route: 048
     Dates: end: 20201221
  7. TENORMIN [Concomitant]
     Active Substance: ATENOLOL
     Indication: Aortic valve stenosis
     Dosage: 25 MG, DAILY
     Route: 048
     Dates: end: 20201221
  8. ROCALTROL [Concomitant]
     Active Substance: CALCITRIOL
     Indication: Prophylaxis
     Dosage: 0.5 MG, DAILY
     Route: 048
     Dates: end: 20201221

REACTIONS (4)
  - Anaemia macrocytic [Recovered/Resolved]
  - Acute kidney injury [Recovered/Resolved]
  - Hypercalcaemia [Unknown]
  - Off label use [Unknown]

NARRATIVE: CASE EVENT DATE: 20201221
